FAERS Safety Report 5288726-1 (Version None)
Quarter: 2007Q2

REPORT INFORMATION
  Report Type: 
  Country: None (occurrence: None)
  Receive Date: 20070405
  Receipt Date: 20070329
  Transmission Date: 20071010
  Serious: Yes (Life-Threatening)
  Sender: FDA-Public Use
  Company Number: JP-GILEAD-2007-0011777

PATIENT
  Sex: Male

DRUGS (6)
  1. VIREAD [Suspect]
     Indication: HIV INFECTION
     Route: 048
     Dates: start: 20050614, end: 20050730
  2. VIDEX [Suspect]
     Indication: HIV INFECTION
     Route: 048
     Dates: start: 20020401, end: 20050730
  3. KALETRA [Suspect]
     Indication: HIV INFECTION
     Route: 048
     Dates: start: 20020401, end: 20050730
  4. ALLOPURINOL [Concomitant]
     Dates: start: 20050401, end: 20050730
  5. ZANTAC [Concomitant]
     Dates: start: 20050401, end: 20050730
  6. RECOMBINATE(RURIOCTOCOG ALFA(GENETICAL RECOMBINATION)) [Concomitant]
     Dates: start: 20050401, end: 20050730

REACTIONS (3)
  - CHOLECYSTITIS ACUTE [None]
  - PANCREATITIS ACUTE [None]
  - RENAL FAILURE ACUTE [None]
